FAERS Safety Report 7792615-8 (Version None)
Quarter: 2011Q4

REPORT INFORMATION
  Report Type: 
  Country: None (occurrence: None)
  Receive Date: 20111003
  Receipt Date: 20110921
  Transmission Date: 20120403
  Serious: No
  Sender: FDA-Public Use
  Company Number: US-B.I. PHARMACEUTICALS,INC./RIDGEFIELD-2011-BP-22675BP

PATIENT
  Age: 60 Year
  Sex: Male

DRUGS (3)
  1. TRAMADOL HCL [Concomitant]
     Indication: BACK PAIN
     Route: 048
  2. FLOMAX [Suspect]
     Indication: BENIGN PROSTATIC HYPERPLASIA
     Dosage: 0.4 MG
     Route: 048
     Dates: start: 20110919, end: 20110920
  3. IBUPROFEN [Concomitant]
     Indication: BACK PAIN
     Route: 048

REACTIONS (3)
  - HEART RATE INCREASED [None]
  - ANXIETY [None]
  - HYPERTENSION [None]
